FAERS Safety Report 8977052 (Version 1)
Quarter: 2012Q4

REPORT INFORMATION
  Report Type: 
  Country: US (occurrence: US)
  Receive Date: 20121220
  Receipt Date: 20121220
  Transmission Date: 20130627
  Serious: Yes (Hospitalization)
  Sender: FDA-Public Use
  Company Number: US-CELGENEUS-163-21880-07060213

PATIENT
  Age: 79 Year
  Sex: Male
  Weight: 82.2 kg

DRUGS (1)
  1. REVLIMID [Suspect]
     Indication: PROSTATE CANCER
     Dosage: 25 Milligram
     Route: 048
     Dates: start: 20070516, end: 20070606

REACTIONS (2)
  - Fluid overload [Unknown]
  - Cardiac failure congestive [Unknown]
